FAERS Safety Report 7578166-4 (Version None)
Quarter: 2011Q2

REPORT INFORMATION
  Report Type: 
  Country: None (occurrence: None)
  Receive Date: 20110628
  Receipt Date: 20110621
  Transmission Date: 20111010
  Serious: Yes (Other)
  Sender: FDA-Public Use
  Company Number: A0932458A

PATIENT
  Age: 14 Year
  Sex: Male

DRUGS (2)
  1. TENEX [Suspect]
     Dosage: 1MG TWICE PER DAY
     Route: 048
     Dates: start: 20110303
  2. LAMICTAL [Suspect]
     Indication: BIPOLAR DISORDER
     Dosage: 200MG PER DAY
     Route: 048
     Dates: start: 20080101

REACTIONS (2)
  - RASH [None]
  - BIPOLAR DISORDER [None]
